FAERS Safety Report 4827478-3 (Version None)
Quarter: 2005Q4

REPORT INFORMATION
  Report Type: 
  Country: None (occurrence: None)
  Receive Date: 20051114
  Receipt Date: 20050215
  Transmission Date: 20060501
  Serious: Yes (Other)
  Sender: FDA-Public Use
  Company Number: CA-ROCHE-395531

PATIENT
  Age: 26 Year
  Sex: Male
  Weight: 75 kg

DRUGS (2)
  1. PEG-INTERFERON ALFA 2A (RO 25-8310) [Suspect]
     Dosage: FORMULATION: LIQUID
     Route: 058
     Dates: start: 20040305, end: 20040422
  2. RIBAVIRIN [Suspect]
     Route: 048
     Dates: start: 20040305, end: 20040422

REACTIONS (3)
  - AGGRESSION [None]
  - ANXIETY [None]
  - HOMICIDAL IDEATION [None]
